FAERS Safety Report 4290465-0 (Version None)
Quarter: 2004Q1

REPORT INFORMATION
  Report Type: 
  Country: None (occurrence: None)
  Receive Date: 20040126
  Receipt Date: 20030924
  Transmission Date: 20041129
  Serious: No
  Sender: FDA-Public Use
  Company Number: USA030538275

PATIENT
  Age: 32 Year
  Sex: Female
  Weight: 53 kg

DRUGS (16)
  1. FORTEO [Suspect]
     Indication: OSTEOPOROSIS
     Dates: start: 20030512
  2. LOESTRIN 1.5/30 [Concomitant]
  3. PAXIL [Concomitant]
  4. SYNTHROID [Concomitant]
  5. NEXIUM [Concomitant]
  6. PREDNISONE [Concomitant]
  7. PHENERGAN [Concomitant]
  8. FOSAMAX [Concomitant]
  9. ZANAFLEX [Concomitant]
  10. CALCIUM [Concomitant]
  11. VITAMIN D [Concomitant]
  12. DIAZEPAM [Concomitant]
  13. ULTRACET [Concomitant]
  14. FLORINEF [Concomitant]
  15. MULTI-VITAMIN [Concomitant]
  16. TRIAMTERENE [Concomitant]

REACTIONS (15)
  - ADRENAL NEOPLASM [None]
  - DISABILITY [None]
  - FOOT OPERATION [None]
  - HEADACHE [None]
  - HIP ARTHROPLASTY [None]
  - HYPERMOBILITY SYNDROME [None]
  - INJECTION SITE ERYTHEMA [None]
  - INJECTION SITE HAEMORRHAGE [None]
  - INJECTION SITE STINGING [None]
  - MEDULLARY THYROID CANCER [None]
  - OESOPHAGEAL DISORDER [None]
  - STRESS FRACTURE [None]
  - THYROIDECTOMY [None]
  - VARICELLA [None]
  - VIRAL INFECTION [None]
